FAERS Safety Report 9727739 (Version 1)
Quarter: 2013Q4

REPORT INFORMATION
  Report Type: Spontaneous
  Country: US (occurrence: US)
  Receive Date: 20131203
  Receipt Date: 20131203
  Transmission Date: 20140711
  Serious: No
  Sender: FDA-Public Use
  Company Number: US-ENDO PHARMACEUTICALS INC.-AMIT20120020

PATIENT
  Age: 18 Year
  Sex: Female

DRUGS (3)
  1. AMITRIPTYLINE HCL [Suspect]
     Indication: MIGRAINE
     Route: 048
     Dates: end: 2012
  2. AMITRIPTYLINE HCL [Suspect]
     Dosage: UNKNOWN
     Route: 048
     Dates: start: 2012
  3. AMITRIPTYLINE HCL [Suspect]
     Dosage: UNKNOWN
     Route: 048
     Dates: start: 2003

REACTIONS (4)
  - Prescribed overdose [Recovered/Resolved]
  - Coeliac disease [Not Recovered/Not Resolved]
  - Cognitive disorder [Not Recovered/Not Resolved]
  - Drug ineffective for unapproved indication [Not Recovered/Not Resolved]
